FAERS Safety Report 21790382 (Version 3)
Quarter: 2023Q1

REPORT INFORMATION
  Report Type: Report from Study
  Country: CA (occurrence: CA)
  Receive Date: 20221228
  Receipt Date: 20230120
  Transmission Date: 20230418
  Serious: Yes (Other)
  Sender: FDA-Public Use
  Company Number: CA-AstraZeneca-2022A405940

PATIENT
  Sex: Female

DRUGS (1)
  1. ENHERTU [Suspect]
     Active Substance: FAM-TRASTUZUMAB DERUXTECAN-NXKI
     Indication: Breast cancer metastatic
     Dosage: 297 MG, ONCE EVERY 3 WK
     Route: 042
     Dates: start: 20220914

REACTIONS (3)
  - Toxicity to various agents [Unknown]
  - Pneumonitis [Unknown]
  - Lung opacity [Unknown]

NARRATIVE: CASE EVENT DATE: 20220101
